FAERS Safety Report 15814940 (Version 1)
Quarter: 2019Q1

REPORT INFORMATION
  Report Type: Spontaneous
  Country: FR (occurrence: FR)
  Receive Date: 20190111
  Receipt Date: 20190111
  Transmission Date: 20190417
  Serious: Yes (Hospitalization)
  Sender: FDA-Public Use
  Company Number: FR-ACCORD-101627

PATIENT
  Age: 45 Year
  Sex: Male

DRUGS (5)
  1. BRINTELLIX [Suspect]
     Active Substance: VORTIOXETINE HYDROBROMIDE
     Indication: POISONING DELIBERATE
     Dosage: UNSPECIFIED
     Route: 048
  2. SERESTA [Suspect]
     Active Substance: OXAZEPAM
     Indication: POISONING DELIBERATE
     Dosage: UNSPECIFIED
     Route: 048
  3. ZOPICLONE [Suspect]
     Active Substance: ZOPICLONE
     Indication: POISONING DELIBERATE
     Dosage: UNSPECIFIED
     Route: 048
  4. ARIPIPRAZOLE. [Suspect]
     Active Substance: ARIPIPRAZOLE
     Indication: POISONING DELIBERATE
     Dosage: UNSPECIFIED
     Route: 048
  5. TERCIAN [Suspect]
     Active Substance: CYAMEMAZINE
     Indication: POISONING DELIBERATE
     Dosage: UNSPECIFIED
     Route: 048

REACTIONS (3)
  - Confusional state [Recovered/Resolved]
  - Depressed level of consciousness [Recovered/Resolved]
  - Off label use [Unknown]

NARRATIVE: CASE EVENT DATE: 20180222
